FAERS Safety Report 14055606 (Version 2)
Quarter: 2017Q4

REPORT INFORMATION
  Report Type: Spontaneous
  Country: US (occurrence: US)
  Receive Date: 20171006
  Receipt Date: 20171011
  Transmission Date: 20180321
  Serious: Yes (Other)
  Sender: FDA-Public Use
  Company Number: US-SA-2017SA191143

PATIENT
  Age: 33 Year
  Sex: Male

DRUGS (6)
  1. PRALUENT [Suspect]
     Active Substance: ALIROCUMAB
     Indication: TYPE IIA HYPERLIPIDAEMIA
     Route: 058
     Dates: start: 201702
  2. PRALUENT [Suspect]
     Active Substance: ALIROCUMAB
     Indication: TYPE IIA HYPERLIPIDAEMIA
     Dosage: FREQUENCY: 5-6 WEEK
     Route: 058
     Dates: start: 201703, end: 201704
  3. ALIROCUMAB PREFILLED PEN [Suspect]
     Active Substance: ALIROCUMAB
     Indication: TYPE IIA HYPERLIPIDAEMIA
     Dates: start: 201702
  4. PRALUENT [Suspect]
     Active Substance: ALIROCUMAB
     Indication: TYPE IIA HYPERLIPIDAEMIA
     Route: 058
     Dates: start: 201611
  5. ALIROCUMAB PREFILLED PEN [Suspect]
     Active Substance: ALIROCUMAB
     Indication: TYPE IIA HYPERLIPIDAEMIA
     Dates: start: 201611
  6. ALIROCUMAB PREFILLED PEN [Suspect]
     Active Substance: ALIROCUMAB
     Indication: TYPE IIA HYPERLIPIDAEMIA
     Dosage: FREQUENCY: 5-6 WEEK
     Dates: start: 201703, end: 201704

REACTIONS (23)
  - Hepatic fibrosis [Unknown]
  - Thyroid function test abnormal [Recovered/Resolved]
  - Therapeutic response decreased [Unknown]
  - Dyspnoea [Unknown]
  - Condition aggravated [Unknown]
  - Nervous system disorder [Unknown]
  - Mental disorder [Unknown]
  - Anxiety [Unknown]
  - Panic attack [Unknown]
  - Cardiac disorder [Unknown]
  - Tachycardia [Unknown]
  - Heart rate increased [Unknown]
  - Autoimmune disorder [Unknown]
  - Tremor [Unknown]
  - Low density lipoprotein increased [Unknown]
  - Product use issue [Unknown]
  - Palpitations [Unknown]
  - Dizziness [Unknown]
  - Thyroid disorder [Unknown]
  - Vitamin B12 deficiency [Unknown]
  - Gait disturbance [Unknown]
  - Fatigue [Not Recovered/Not Resolved]
  - Hypertension [Unknown]

NARRATIVE: CASE EVENT DATE: 2017
